FAERS Safety Report 4626237-4 (Version None)
Quarter: 2005Q2

REPORT INFORMATION
  Report Type: 
  Country: None (occurrence: None)
  Receive Date: 20050331
  Receipt Date: 20040206
  Transmission Date: 20051028
  Serious: Yes (Hospitalization, Other)
  Sender: FDA-Public Use
  Company Number: 200410629BCC

PATIENT
  Age: 52 Year
  Sex: Female

DRUGS (5)
  1. ALEVE (CAPLET) [Suspect]
     Indication: ARTHRITIS
     Dosage: ORAL
     Route: 048
  2. MOTRIN [Suspect]
  3. ASPIRIN REGIMEN (ACETYLSALICYLIC ACID) [Suspect]
  4. NAPROSYN [Suspect]
  5. HORMONAL THERAPY [Concomitant]

REACTIONS (2)
  - GASTRIC HAEMORRHAGE [None]
  - LARGE INTESTINAL ULCER [None]
